FAERS Safety Report 7468724-X (Version None)
Quarter: 2011Q2

REPORT INFORMATION
  Report Type: 
  Country: None (occurrence: None)
  Receive Date: 20110510
  Receipt Date: 20110429
  Transmission Date: 20111010
  Serious: No
  Sender: FDA-Public Use
  Company Number: US-BIOGENIDEC-2011BI012629

PATIENT
  Sex: Female

DRUGS (1)
  1. TYSABRI [Suspect]
     Indication: MULTIPLE SCLEROSIS
     Route: 042
     Dates: start: 20101220

REACTIONS (9)
  - GAIT DISTURBANCE [None]
  - MUSCULAR WEAKNESS [None]
  - JOINT SPRAIN [None]
  - ARTHRALGIA [None]
  - LOSS OF CONTROL OF LEGS [None]
  - FALL [None]
  - ASTHENIA [None]
  - PARAESTHESIA [None]
  - BACK PAIN [None]
